FAERS Safety Report 8352611-9 (Version None)
Quarter: 2012Q2

REPORT INFORMATION
  Report Type: 
  Country: None (occurrence: None)
  Receive Date: 20120509
  Receipt Date: 20120430
  Transmission Date: 20120825
  Serious: Yes (Other)
  Sender: FDA-Public Use
  Company Number: 2012SP019761

PATIENT
  Age: 53 Year
  Sex: Male

DRUGS (4)
  1. DIVALPROEX SODIUM [Concomitant]
  2. PASSIFLORE [Concomitant]
  3. DULOXETINE HYDROCHLORIDE [Concomitant]
  4. SAPHRIS [Suspect]
     Indication: BIPOLAR DISORDER
     Dosage: 10 MG, QD, SL
     Route: 060
     Dates: start: 20120410, end: 20120413

REACTIONS (4)
  - UNRESPONSIVE TO STIMULI [None]
  - PARAESTHESIA [None]
  - SWOLLEN TONGUE [None]
  - SPEECH DISORDER [None]
